FAERS Safety Report 6586118-6 (Version None)
Quarter: 2010Q1

REPORT INFORMATION
  Report Type: 
  Country: None (occurrence: None)
  Receive Date: 20100217
  Receipt Date: 20100209
  Transmission Date: 20100710
  Serious: Yes (Hospitalization)
  Sender: FDA-Public Use
  Company Number: FR-AMGEN-UK392054

PATIENT
  Age: 55 Year
  Sex: Female

DRUGS (4)
  1. ARANESP [Suspect]
     Indication: ANAEMIA
     Route: 065
     Dates: start: 20070501
  2. PEGINTERFERON ALFA-2A [Suspect]
     Route: 065
     Dates: start: 20030101
  3. RIBAVIRIN [Concomitant]
     Route: 065
     Dates: start: 20030101
  4. VERAPAMIL [Concomitant]
     Route: 065
     Dates: start: 19900101

REACTIONS (3)
  - CEREBRAL VASOCONSTRICTION [None]
  - HYPERTENSION [None]
  - SUBARACHNOID HAEMORRHAGE [None]
